FAERS Safety Report 7282776-1 (Version None)
Quarter: 2011Q1

REPORT INFORMATION
  Report Type: 
  Country: None (occurrence: None)
  Receive Date: 20110209
  Receipt Date: 20101227
  Transmission Date: 20110831
  Serious: Yes (Hospitalization)
  Sender: FDA-Public Use
  Company Number: US-BAYER-201039519NA

PATIENT
  Sex: Female
  Weight: 95 kg

DRUGS (23)
  1. ADVAIR [Concomitant]
     Indication: PRODUCT USED FOR UNKNOWN INDICATION
     Dosage: TOTAL DAIKY DOSE: 500
     Dates: start: 20050101
  2. CALCIUM CARBONATE [Concomitant]
     Indication: PRODUCT USED FOR UNKNOWN INDICATION
     Dates: start: 20070401
  3. ACIDO FOLICO [Concomitant]
  4. MOTRIN [Concomitant]
     Indication: HEADACHE
  5. SINGULAIR [Concomitant]
     Indication: PRODUCT USED FOR UNKNOWN INDICATION
  6. LEVAQUIN [Concomitant]
     Indication: PRODUCT USED FOR UNKNOWN INDICATION
     Dates: start: 20050101
  7. BIAXIN [Concomitant]
     Indication: PRODUCT USED FOR UNKNOWN INDICATION
  8. CODEINE W/GUAIFENESIN [Concomitant]
     Indication: PRODUCT USED FOR UNKNOWN INDICATION
     Dates: start: 20070401
  9. VITAMIN B12 NOS [Concomitant]
  10. YAZ [Suspect]
     Indication: PRODUCT USED FOR UNKNOWN INDICATION
     Route: 048
     Dates: start: 20060701, end: 20070401
  11. AVELOX [Concomitant]
     Indication: PRODUCT USED FOR UNKNOWN INDICATION
     Dosage: 400 MG (DAILY DOSE), , ORAL
     Route: 048
     Dates: start: 20050101
  12. OPIUM ALKALOIDS AND DERIVATIVES [Concomitant]
     Indication: PRODUCT USED FOR UNKNOWN INDICATION
     Dosage: 2 TEA SPOONS EVERY 4-6 HOURS
     Route: 048
  13. POTASSIUM [Concomitant]
     Indication: PRODUCT USED FOR UNKNOWN INDICATION
     Dates: start: 20070401
  14. ZITHROMAX [Concomitant]
     Indication: PRODUCT USED FOR UNKNOWN INDICATION
     Dates: start: 20070401
  15. PROVENTIL [Concomitant]
     Indication: PRODUCT USED FOR UNKNOWN INDICATION
     Dates: start: 20050101
  16. XOPENEX [Concomitant]
     Indication: PRODUCT USED FOR UNKNOWN INDICATION
     Dosage: TOTAL DAILY DOSE: 1.25
     Route: 055
     Dates: start: 20050101
  17. YASMIN [Suspect]
     Indication: CONTRACEPTION
     Route: 048
     Dates: start: 20060701, end: 20070401
  18. YASMIN [Suspect]
     Indication: MIGRAINE
  19. PREDNISONE [Concomitant]
     Indication: ASTHMA
     Dosage: 40 MG (DAILY DOSE), , ORAL
     Route: 048
     Dates: start: 20050101
  20. PULMICORT [Concomitant]
     Indication: PRODUCT USED FOR UNKNOWN INDICATION
     Dosage: TOTAL DAILY DOSE: 50
     Route: 055
     Dates: start: 20050101
  21. UNCODEABLE ^UNCLASSIFIABLE^ [Concomitant]
     Indication: HEADACHE
  22. PROZAC [Concomitant]
     Indication: HEADACHE
     Dates: start: 20000101
  23. IPRATROPIUM BROMIDE [Concomitant]
     Indication: PRODUCT USED FOR UNKNOWN INDICATION
     Dates: start: 20070401

REACTIONS (5)
  - WHEEZING [None]
  - PULMONARY EMBOLISM [None]
  - THROMBOSIS [None]
  - DYSPNOEA [None]
  - HYPERHIDROSIS [None]
